FAERS Safety Report 4873098-4 (Version None)
Quarter: 2006Q1

REPORT INFORMATION
  Report Type: 
  Country: None (occurrence: None)
  Receive Date: 20060104
  Receipt Date: 20060104
  Transmission Date: 20060701
  Serious: Yes (Life-Threatening, Hospitalization)
  Sender: FDA-Public Use
  Company Number: None

PATIENT
  Age: 36 Year
  Sex: Female
  Weight: 47 kg

DRUGS (1)
  1. COCAINE [Suspect]

REACTIONS (4)
  - AGGRESSION [None]
  - OVERDOSE [None]
  - SCREAMING [None]
  - SUICIDAL IDEATION [None]
